FAERS Safety Report 13565569 (Version 1)
Quarter: 2017Q2

REPORT INFORMATION
  Report Type: Spontaneous
  Country: US (occurrence: US)
  Receive Date: 20170519
  Receipt Date: 20170519
  Transmission Date: 20170830
  Serious: No
  Sender: FDA-Public Use
  Company Number: US-PFM-2016-03671

PATIENT
  Age: 20 Month
  Sex: Female
  Weight: 12.25 kg

DRUGS (1)
  1. HEMANGEOL [Suspect]
     Active Substance: PROPRANOLOL HYDROCHLORIDE
     Indication: PRODUCT USED FOR UNKNOWN INDICATION
     Dosage: 3.8 ML, BID (2/DAY)
     Route: 048
     Dates: start: 20161121

REACTIONS (3)
  - Aspartate aminotransferase increased [Unknown]
  - Drug administered to patient of inappropriate age [Unknown]
  - Off label use [Unknown]
